FAERS Safety Report 14773396 (Version 1)
Quarter: 2018Q2

REPORT INFORMATION
  Report Type: Spontaneous
  Country: US (occurrence: US)
  Receive Date: 20180411
  Receipt Date: 20180411
  Transmission Date: 20180711
  Serious: Yes (Life-Threatening, Hospitalization)
  Sender: FDA-Public Use
  Company Number: None

PATIENT
  Age: 75 Year
  Sex: Male
  Weight: 99.29 kg

DRUGS (2)
  1. CEPHALEXIN. [Suspect]
     Active Substance: CEPHALEXIN
     Indication: SURGERY
     Route: 048
     Dates: start: 20180216, end: 20180216
  2. CEPHALEXIN. [Suspect]
     Active Substance: CEPHALEXIN
     Indication: HYPERTENSION
     Route: 048
     Dates: start: 20170821, end: 20180216

REACTIONS (5)
  - Drooling [None]
  - Swelling face [None]
  - Swollen tongue [None]
  - Dysphagia [None]
  - Angioedema [None]

NARRATIVE: CASE EVENT DATE: 201802
